FAERS Safety Report 17440678 (Version 2)
Quarter: 2020Q1

REPORT INFORMATION
  Report Type: Spontaneous
  Country: US (occurrence: US)
  Receive Date: 20200220
  Receipt Date: 20200221
  Transmission Date: 20200409
  Serious: Yes (Other)
  Sender: FDA-Public Use
  Company Number: US-PFIZER INC-2020074152

PATIENT
  Age: 35 Year
  Sex: Male
  Weight: 137.44 kg

DRUGS (10)
  1. KLONOPIN [Concomitant]
     Active Substance: CLONAZEPAM
     Dosage: UNK
  2. NEURONTIN [Suspect]
     Active Substance: GABAPENTIN
     Indication: BIPOLAR DISORDER
     Dosage: 600 MG, 3X/DAY
     Dates: end: 202001
  3. GABAPENTIN. [Suspect]
     Active Substance: GABAPENTIN
     Indication: NEUROPATHY PERIPHERAL
     Dosage: 3600 MG, 1X/DAY
     Dates: end: 202001
  4. CLONIDINE. [Concomitant]
     Active Substance: CLONIDINE
     Dosage: UNK
  5. GABAPENTIN. [Suspect]
     Active Substance: GABAPENTIN
     Indication: SCHIZOAFFECTIVE DISORDER
  6. NEURONTIN [Suspect]
     Active Substance: GABAPENTIN
     Indication: NEUROPATHY PERIPHERAL
  7. NEURONTIN [Suspect]
     Active Substance: GABAPENTIN
     Indication: SCHIZOAFFECTIVE DISORDER
     Dosage: 300 MG, 3X/DAY
  8. GABAPENTIN. [Suspect]
     Active Substance: GABAPENTIN
     Indication: BIPOLAR DISORDER
     Dosage: 600 MG, 3X/DAY
  9. DEPAKOTE [Concomitant]
     Active Substance: DIVALPROEX SODIUM
  10. METHADONE [Concomitant]
     Active Substance: METHADONE HYDROCHLORIDE
     Dosage: UNK

REACTIONS (18)
  - Diplopia [Unknown]
  - Product use in unapproved indication [Unknown]
  - Anaphylactic reaction [Unknown]
  - Anxiety [Unknown]
  - Withdrawal syndrome [Unknown]
  - Major depression [Unknown]
  - Drug abuse [Unknown]
  - Dependence [Unknown]
  - Off label use [Unknown]
  - Disturbance in attention [Unknown]
  - Pruritus [Unknown]
  - Suicidal ideation [Unknown]
  - Weight increased [Unknown]
  - Oedema peripheral [Unknown]
  - Vision blurred [Unknown]
  - Peripheral swelling [Unknown]
  - Confusional state [Unknown]
  - Feeling abnormal [Unknown]
